FAERS Safety Report 8397280-7 (Version None)
Quarter: 2012Q2

REPORT INFORMATION
  Report Type: 
  Country: None (occurrence: None)
  Receive Date: 20120531
  Receipt Date: 20120523
  Transmission Date: 20120825
  Serious: Yes (Death, Hospitalization)
  Sender: FDA-Public Use
  Company Number: US-BIOGENIDEC-2012BI006437

PATIENT
  Age: 55 Year
  Sex: Male
  Weight: 99 kg

DRUGS (23)
  1. FISH OIL [Concomitant]
     Route: 048
     Dates: start: 20100325
  2. MULTI-VITAMINS [Concomitant]
     Dates: start: 20080429
  3. EMLA [Concomitant]
     Route: 061
     Dates: start: 20100701
  4. HYDROCODONE BITARTRATE + ACETAMINOPHEN [Concomitant]
     Route: 048
     Dates: start: 20101201
  5. HYDROCODONE BITARTRATE + ACETAMINOPHEN [Concomitant]
     Route: 048
  6. ASPIRIN [Concomitant]
     Route: 048
     Dates: start: 20111230
  7. LYRICA [Concomitant]
     Route: 048
     Dates: start: 20111031
  8. LAMICTAL [Concomitant]
     Route: 048
  9. ALPRAZOLAM [Concomitant]
     Route: 048
     Dates: start: 20100520
  10. TENORMIN [Concomitant]
     Route: 048
  11. CRESTOR [Concomitant]
     Route: 048
  12. TYSABRI [Suspect]
     Indication: MULTIPLE SCLEROSIS
     Route: 042
     Dates: start: 20070411
  13. LEVETIRACETAM [Concomitant]
     Route: 048
     Dates: start: 20111031
  14. LIPITOR [Concomitant]
     Route: 048
     Dates: start: 20091205
  15. METOPROLOL TARTRATE [Concomitant]
     Route: 048
     Dates: start: 20091205
  16. INDOCIN [Concomitant]
     Route: 048
  17. NIACIN [Concomitant]
     Route: 048
  18. VITAMIN D [Concomitant]
     Route: 048
     Dates: start: 20090811
  19. FIBERCON [Concomitant]
     Route: 048
     Dates: start: 20060629
  20. COUMADIN [Concomitant]
     Indication: ANTICOAGULANT THERAPY
     Route: 048
     Dates: start: 20101001
  21. DYAZIDE [Concomitant]
     Route: 048
  22. DYAZIDE [Concomitant]
     Route: 048
  23. LEXAPRO [Concomitant]
     Route: 048
     Dates: start: 20110527

REACTIONS (2)
  - ACCIDENTAL OVERDOSE [None]
  - MULTI-ORGAN FAILURE [None]
